FAERS Safety Report 9969571 (Version 1)
Quarter: 2014Q1

REPORT INFORMATION
  Report Type: Spontaneous
  Country: DE (occurrence: DE)
  Receive Date: 20140306
  Receipt Date: 20140306
  Transmission Date: 20141002
  Serious: Yes (Other)
  Sender: FDA-Public Use
  Company Number: DE-009507513-1403DEU001847

PATIENT
  Sex: Male

DRUGS (1)
  1. SINGULAIR 10 MG FILMTABLETTEN [Suspect]
     Route: 048

REACTIONS (2)
  - Suicide attempt [Unknown]
  - Hallucination [Unknown]
